FAERS Safety Report 12377207 (Version 2)
Quarter: 2016Q2

REPORT INFORMATION
  Report Type: Report from Study
  Country: US (occurrence: US)
  Receive Date: 20160517
  Receipt Date: 20160606
  Transmission Date: 20160815
  Serious: Yes (Hospitalization)
  Sender: FDA-Public Use
  Company Number: PHHO2016US006830

PATIENT
  Age: 48 Year
  Sex: Male
  Weight: 84.4 kg

DRUGS (21)
  1. ELIN MAGNESIUM SULFATE [Concomitant]
     Indication: HYPOMAGNESAEMIA
  2. MYCOPHENOLATE [Concomitant]
     Active Substance: MYCOPHENOLIC ACID
  3. OXYCODONE [Concomitant]
     Active Substance: OXYCODONE
  4. TACROLIMUS. [Concomitant]
     Active Substance: TACROLIMUS
  5. FILGRASTINE [Concomitant]
  6. MIDAZOLAM [Concomitant]
     Active Substance: MIDAZOLAM\MIDAZOLAM HYDROCHLORIDE
  7. PIPERACILLIN AND TAZOBACTAM [Concomitant]
     Active Substance: PIPERACILLIN SODIUM\TAZOBACTAM SODIUM
  8. SUCRALFATE. [Concomitant]
     Active Substance: SUCRALFATE
  9. LORAZEPAM. [Concomitant]
     Active Substance: LORAZEPAM
     Indication: NAUSEA
     Route: 065
  10. MIRALAX [Concomitant]
     Active Substance: POLYETHYLENE GLYCOL 3350
  11. URSODIOL. [Concomitant]
     Active Substance: URSODIOL
  12. PANTOPRAZOLE [Concomitant]
     Active Substance: PANTOPRAZOLE SODIUM
  13. POSACONAZOLE [Concomitant]
     Active Substance: POSACONAZOLE
  14. SOM230 [Suspect]
     Active Substance: PASIREOTIDE
     Dosage: 0.9 MG, Q12H
     Route: 058
     Dates: start: 20160415, end: 20160428
  15. PROCHLORPERAZINE. [Concomitant]
     Active Substance: PROCHLORPERAZINE
  16. SCOPOLAMINE [Concomitant]
     Active Substance: SCOPOLAMINE
  17. IOPAMIDOL [Concomitant]
     Active Substance: IOPAMIDOL
     Dosage: UNK
  18. THIO-TEPA [Concomitant]
     Active Substance: THIOTEPA
  19. ONDANSETRON [Concomitant]
     Active Substance: ONDANSETRON
  20. POTASSIUM CHLORIDE. [Concomitant]
     Active Substance: POTASSIUM CHLORIDE
  21. SULFAMETHOXAZOLE AND TRIMETHOPRIM [Concomitant]
     Active Substance: SULFAMETHOXAZOLE\TRIMETHOPRIM

REACTIONS (1)
  - Enteritis [Not Recovered/Not Resolved]

NARRATIVE: CASE EVENT DATE: 20160428
